FAERS Safety Report 5954795-6 (Version None)
Quarter: 2008Q4

REPORT INFORMATION
  Report Type: 
  Country: None (occurrence: None)
  Receive Date: 20081117
  Receipt Date: 20081110
  Transmission Date: 20090506
  Serious: Yes (Disabling)
  Sender: FDA-Public Use
  Company Number: IN-AVENTIS-200820563GDDC

PATIENT
  Age: 51 Year
  Sex: Female

DRUGS (4)
  1. ARAVA [Suspect]
     Indication: RHEUMATOID ARTHRITIS
     Route: 048
     Dates: start: 20080703, end: 20080813
  2. NSAID'S [Concomitant]
     Indication: PAIN
     Dosage: DOSE: UNK
     Route: 048
  3. FOLIC ACID [Concomitant]
     Dosage: DOSE: UNK
  4. PROTON PUMP INHIBITORS [Concomitant]
     Dosage: DOSE: UNK

REACTIONS (9)
  - ALOPECIA [None]
  - ANOREXIA [None]
  - DYSURIA [None]
  - GINGIVAL SWELLING [None]
  - HYPERHIDROSIS [None]
  - OCULAR HYPERAEMIA [None]
  - POLLAKIURIA [None]
  - RASH [None]
  - STOMATITIS [None]
